FAERS Safety Report 12399638 (Version 1)
Quarter: 2016Q2

REPORT INFORMATION
  Report Type: Spontaneous
  Country: US (occurrence: US)
  Receive Date: 20160524
  Receipt Date: 20160524
  Transmission Date: 20160815
  Serious: Yes (Other)
  Sender: FDA-Public Use
  Company Number: US-PURDUE-USA-2016-0130873

PATIENT
  Age: 62 Year
  Sex: Male

DRUGS (2)
  1. SOMA [Suspect]
     Active Substance: CARISOPRODOL
     Indication: PROCEDURAL PAIN
     Route: 048
  2. HYDROCODONE BITARTRATE (SIMILAR TO NDA 206627) [Suspect]
     Active Substance: HYDROCODONE BITARTRATE
     Indication: PROCEDURAL PAIN
     Route: 048

REACTIONS (5)
  - Unevaluable event [Unknown]
  - Drug dependence [Recovered/Resolved]
  - Feeling abnormal [Unknown]
  - Pain [Unknown]
  - Fine motor skill dysfunction [Unknown]
